FAERS Safety Report 8099731-4 (Version None)
Quarter: 2012Q1

REPORT INFORMATION
  Report Type: 
  Country: None (occurrence: None)
  Receive Date: 20120129
  Receipt Date: 20110914
  Transmission Date: 20120608
  Serious: No
  Sender: FDA-Public Use
  Company Number: US-ABBOTT-11P-163-0855539-00

PATIENT
  Sex: Male

DRUGS (3)
  1. HUMIRA [Suspect]
     Indication: PSORIASIS
     Dates: start: 20110101, end: 20110101
  2. HUMIRA [Suspect]
     Dates: end: 20110101
  3. HUMIRA [Suspect]
     Dates: end: 20110101

REACTIONS (1)
  - DRUG ADMINISTRATION ERROR [None]
